FAERS Safety Report 23223982 (Version 1)
Quarter: 2023Q4

REPORT INFORMATION
  Report Type: Spontaneous
  Country: US (occurrence: US)
  Receive Date: 20231124
  Receipt Date: 20231124
  Transmission Date: 20240110
  Serious: Yes (Other)
  Sender: FDA-Public Use
  Company Number: US-APOTEX-2023AP016733

PATIENT
  Age: 76 Year
  Sex: Female

DRUGS (2)
  1. GLIPIZIDE [Suspect]
     Active Substance: GLIPIZIDE
     Indication: Type 2 diabetes mellitus
     Dosage: 10 MILLIGRAM, QD
     Route: 065
  2. GLIPIZIDE [Suspect]
     Active Substance: GLIPIZIDE
     Dosage: 5 MILLIGRAM
     Route: 065

REACTIONS (8)
  - Hypoglycaemia [Recovered/Resolved]
  - Toxicity to various agents [Recovering/Resolving]
  - Asthenia [Unknown]
  - Tachypnoea [Unknown]
  - Lethargy [Unknown]
  - Confusional state [Recovered/Resolved]
  - Condition aggravated [Unknown]
  - Mental status changes [Recovered/Resolved]
